FAERS Safety Report 14392605 (Version 1)
Quarter: 2018Q1

REPORT INFORMATION
  Report Type: Spontaneous
  Country: US (occurrence: US)
  Receive Date: 20180112
  Receipt Date: 20180112
  Transmission Date: 20180509
  Serious: Yes (Disabling)
  Sender: FDA-Public Use
  Company Number: None

PATIENT
  Age: 69 Year
  Sex: Male
  Weight: 81 kg

DRUGS (8)
  1. VITAMIN B12 [Concomitant]
     Active Substance: CYANOCOBALAMIN
  2. METOPROLOL. [Concomitant]
     Active Substance: METOPROLOL
  3. AMLOD/BENAZEPRIL 5-20 MG CAP [Suspect]
     Active Substance: AMLODIPINE BESYLATE\BENAZEPRIL HYDROCHLORIDE
     Indication: BLOOD PRESSURE MEASUREMENT
     Route: 048
     Dates: start: 20180103, end: 20180111
  4. UBIQUINOL [Concomitant]
     Active Substance: UBIQUINOL
  5. LEVOTHROID [Concomitant]
     Active Substance: LEVOTHYROXINE SODIUM
  6. RESTASIS [Concomitant]
     Active Substance: CYCLOSPORINE
  7. VITAMIN C [Concomitant]
     Active Substance: ASCORBIC ACID
  8. GLOCASAMINE/CHONDROITIN [Concomitant]

REACTIONS (8)
  - Product substitution issue [None]
  - Headache [None]
  - Pollakiuria [None]
  - Dizziness [None]
  - Product quality issue [None]
  - Malaise [None]
  - Nausea [None]
  - Bradyphrenia [None]

NARRATIVE: CASE EVENT DATE: 20180108
